FAERS Safety Report 7543510-0 (Version None)
Quarter: 2011Q2

REPORT INFORMATION
  Report Type: 
  Country: None (occurrence: None)
  Receive Date: 20110613
  Receipt Date: 20011121
  Transmission Date: 20111010
  Serious: Yes (Death)
  Sender: FDA-Public Use
  Company Number: PHBS2001CA11731

PATIENT
  Sex: Female

DRUGS (2)
  1. EXELON [Suspect]
     Dosage: 4.5 MG, BID
     Route: 065
     Dates: start: 20010704
  2. EXELON [Suspect]
     Route: 065
     Dates: start: 20010504

REACTIONS (1)
  - DEATH [None]
